FAERS Safety Report 14275712 (Version 1)
Quarter: 2017Q4

REPORT INFORMATION
  Report Type: Other
  Country: JP (occurrence: JP)
  Receive Date: 20171211
  Receipt Date: 20171211
  Transmission Date: 20180321
  Serious: Yes (Hospitalization, Other)
  Sender: FDA-Public Use
  Company Number: JP-OTSUKA-2017_012485

PATIENT
  Age: 50 Year
  Sex: Female

DRUGS (10)
  1. LITHIUM CARBONATE. [Suspect]
     Active Substance: LITHIUM CARBONATE
     Indication: PRODUCT USED FOR UNKNOWN INDICATION
     Dosage: 600 (UNIT UNKNOWN), DAILY
     Route: 048
     Dates: start: 20160118, end: 20160222
  2. MAGLAX [Concomitant]
     Active Substance: MAGNESIUM OXIDE
     Indication: PRODUCT USED FOR UNKNOWN INDICATION
     Dosage: UNK
     Route: 065
  3. SODIUM VALPROATE [Concomitant]
     Active Substance: VALPROATE SODIUM
     Indication: PRODUCT USED FOR UNKNOWN INDICATION
     Dosage: UNK
     Route: 048
  4. ABILIFY [Suspect]
     Active Substance: ARIPIPRAZOLE
     Dosage: 12 (UNIT UNKNOWN), DAILY
     Route: 048
     Dates: start: 20170608, end: 20170610
  5. CONTOMIN                           /00011907/ [Concomitant]
     Active Substance: CHLORPROMAZINE HIBENZATE
     Indication: PRODUCT USED FOR UNKNOWN INDICATION
     Dosage: UNK
     Route: 065
  6. VALPROATE SODIUM. [Concomitant]
     Active Substance: VALPROATE SODIUM
     Indication: PRODUCT USED FOR UNKNOWN INDICATION
     Route: 048
  7. ABILIFY [Suspect]
     Active Substance: ARIPIPRAZOLE
     Indication: BIPOLAR DISORDER
     Dosage: UNK
     Route: 048
     Dates: start: 201602, end: 201602
  8. ZOTEPINE [Concomitant]
     Active Substance: ZOTEPINE
     Indication: PRODUCT USED FOR UNKNOWN INDICATION
     Dosage: 125 (UNIT UNKNOWN), DAILY
     Route: 048
     Dates: start: 20160114, end: 20160201
  9. CONTOMIN [Concomitant]
     Active Substance: CHLORPROMAZINE
     Indication: PRODUCT USED FOR UNKNOWN INDICATION
     Dosage: UNK
     Route: 048
  10. URSO [Concomitant]
     Active Substance: URSODIOL
     Indication: PRODUCT USED FOR UNKNOWN INDICATION
     Dosage: UNK
     Route: 048

REACTIONS (1)
  - Drug-induced liver injury [Unknown]

NARRATIVE: CASE EVENT DATE: 20160125
